FAERS Safety Report 8654018 (Version 2)
Quarter: 2013Q2

REPORT INFORMATION
  Report Type: Spontaneous
  Country: BR (occurrence: BR)
  Receive Date: 20120709
  Receipt Date: 20130627
  Transmission Date: 20140414
  Serious: Yes (Other)
  Sender: FDA-Public Use
  Company Number: BR-ASTRAZENECA-2012SE44440

PATIENT
  Age: 60 Year
  Sex: Female
  Weight: 60 kg

DRUGS (7)
  1. ARIMIDEX [Suspect]
     Indication: BREAST CANCER FEMALE
     Dosage: ONCE DAILY
     Route: 048
     Dates: start: 2010
  2. UNKNOWN [Concomitant]
     Indication: DEPRESSION
     Route: 048
     Dates: start: 2002
  3. ZETSIM [Concomitant]
     Route: 048
     Dates: start: 2004
  4. LIPLESS [Concomitant]
     Route: 048
     Dates: start: 2004
  5. INDAPEN [Concomitant]
     Indication: HYPERTENSION
     Route: 048
     Dates: start: 2007
  6. PANTOCAL [Concomitant]
     Indication: DYSPEPSIA
     Route: 048
     Dates: start: 2007
  7. SYNTHROID [Concomitant]
     Route: 048
     Dates: start: 2007

REACTIONS (3)
  - Diabetes mellitus [Recovered/Resolved]
  - Arthralgia [Not Recovered/Not Resolved]
  - Fatigue [Not Recovered/Not Resolved]
